FAERS Safety Report 4300909-3 (Version None)
Quarter: 2004Q1

REPORT INFORMATION
  Report Type: 
  Country: None (occurrence: None)
  Receive Date: 20040220
  Receipt Date: 20030411
  Transmission Date: 20041129
  Serious: Yes (Hospitalization, Disabling)
  Sender: FDA-Public Use
  Company Number: WAES 0304USA01434

PATIENT
  Age: 54 Year
  Sex: Female
  Weight: 61 kg

DRUGS (3)
  1. PROZAC [Concomitant]
     Dates: start: 19980101, end: 20000101
  2. INTERFERON (UNSPECIFIED) [Concomitant]
  3. VIOXX [Suspect]
     Indication: ARTHRITIS
     Route: 048
     Dates: end: 20031001

REACTIONS (24)
  - ACUTE MYOCARDIAL INFARCTION [None]
  - ACUTE RESPIRATORY DISTRESS SYNDROME [None]
  - ANAEMIA [None]
  - CARDIAC ARREST [None]
  - CARDIOGENIC SHOCK [None]
  - CATHETER RELATED INFECTION [None]
  - COAGULOPATHY [None]
  - CORONARY ARTERY ATHEROSCLEROSIS [None]
  - CORONARY ARTERY OCCLUSION [None]
  - DEEP VEIN THROMBOSIS [None]
  - DEPRESSION [None]
  - DIARRHOEA [None]
  - HEPATIC FAILURE [None]
  - INJURY [None]
  - INTERVERTEBRAL DISC DISORDER [None]
  - ISCHAEMIA [None]
  - OSTEOARTHRITIS [None]
  - PNEUMONIA ASPIRATION [None]
  - PYREXIA [None]
  - RENAL INFARCT [None]
  - SPLENIC INFARCTION [None]
  - THERAPY NON-RESPONDER [None]
  - THROMBOSIS [None]
  - VOMITING [None]
